FAERS Safety Report 6934416-6 (Version None)
Quarter: 2010Q3

REPORT INFORMATION
  Report Type: 
  Country: None (occurrence: None)
  Receive Date: 20100820
  Receipt Date: 20100811
  Transmission Date: 20110219
  Serious: Yes (Life-Threatening, Hospitalization)
  Sender: FDA-Public Use
  Company Number: B0645332A

PATIENT
  Sex: Female
  Weight: 50 kg

DRUGS (7)
  1. LAMICTAL [Suspect]
     Indication: BIPOLAR DISORDER
     Route: 048
     Dates: start: 20100206, end: 20100228
  2. DEPAKENE [Concomitant]
     Indication: BIPOLAR DISORDER
     Dosage: 400MG PER DAY
     Route: 048
     Dates: start: 20090312, end: 20100301
  3. EMPYNASE [Concomitant]
     Indication: BRONCHITIS
     Dosage: 54MG PER DAY
     Route: 048
     Dates: start: 20100220, end: 20100228
  4. HALCION [Concomitant]
     Indication: INSOMNIA
     Dosage: .5MG PER DAY
     Route: 048
     Dates: start: 20080601, end: 20100228
  5. DEPAS [Concomitant]
     Indication: BIPOLAR DISORDER
     Route: 048
     Dates: start: 20080801, end: 20100228
  6. MAGLAX [Concomitant]
     Indication: CONSTIPATION
     Route: 048
     Dates: start: 20090101, end: 20100228
  7. LAXOBERON [Concomitant]
     Indication: CONSTIPATION
     Route: 048
     Dates: start: 20090101, end: 20100228

REACTIONS (15)
  - ACANTHOLYSIS [None]
  - BLEPHAROSYNECHIA [None]
  - BLISTER [None]
  - CORNEAL EROSION [None]
  - ENTROPION [None]
  - EPIDERMAL NECROSIS [None]
  - ERYTHEMA [None]
  - EYELID EROSION [None]
  - GENITAL EROSION [None]
  - MUCOSAL EROSION [None]
  - NEUTROPHIL COUNT INCREASED [None]
  - PYREXIA [None]
  - RASH [None]
  - STEVENS-JOHNSON SYNDROME [None]
  - TOXIC EPIDERMAL NECROLYSIS [None]
